FAERS Safety Report 8341085 (Version 3)
Quarter: 2013Q4

REPORT INFORMATION
  Report Type: Spontaneous
  Country: US (occurrence: US)
  Receive Date: 20120118
  Receipt Date: 20131016
  Transmission Date: 20140711
  Serious: Yes (Other)
  Sender: FDA-Public Use
  Company Number: US-UCBSA-049440

PATIENT
  Age: 43 Year
  Sex: Female
  Weight: 48 kg

DRUGS (3)
  1. CIMZIA [Suspect]
     Indication: CROHN^S DISEASE
     Dosage: EXP DATE DEC-2015
     Route: 058
     Dates: start: 20091106
  2. CIMZIA [Suspect]
     Indication: CROHN^S DISEASE
     Dates: start: 2013
  3. 6 MP [Concomitant]
     Indication: CROHN^S DISEASE
     Dosage: FOR 10 YEARS

REACTIONS (3)
  - Crohn^s disease [Not Recovered/Not Resolved]
  - Surgery [Recovered/Resolved]
  - Drug ineffective [Not Recovered/Not Resolved]
